FAERS Safety Report 7110180-5 (Version None)
Quarter: 2010Q4

REPORT INFORMATION
  Report Type: 
  Country: None (occurrence: None)
  Receive Date: 20101118
  Receipt Date: 20101108
  Transmission Date: 20110411
  Serious: Yes (Other)
  Sender: FDA-Public Use
  Company Number: JP-ELI_LILLY_AND_COMPANY-JP201010001314

PATIENT
  Age: 61 Year
  Sex: Male

DRUGS (2)
  1. ALIMTA [Suspect]
     Indication: LUNG CARCINOMA CELL TYPE UNSPECIFIED RECURRENT
     Dosage: 850 MG, OTHER
     Route: 042
     Dates: end: 20101004
  2. CARBOPLATIN [Concomitant]
     Indication: LUNG CARCINOMA CELL TYPE UNSPECIFIED RECURRENT
     Dosage: 600 MG, OTHER
     Route: 042
     Dates: end: 20101004

REACTIONS (1)
  - SHOCK [None]
